FAERS Safety Report 5230476-1 (Version None)
Quarter: 2007Q1

REPORT INFORMATION
  Report Type: 
  Country: None (occurrence: None)
  Receive Date: 20070202
  Receipt Date: 20070124
  Transmission Date: 20070707
  Serious: Yes (Other)
  Sender: FDA-Public Use
  Company Number: SPV1-2007-00299

PATIENT
  Age: 7 Year
  Sex: Male
  Weight: 23 kg

DRUGS (1)
  1. ADDERALL 15 [Suspect]
     Dosage: 15 MG, ORAL
     Route: 048

REACTIONS (4)
  - HEADACHE [None]
  - NAUSEA [None]
  - PALPITATIONS [None]
  - PRESYNCOPE [None]
